FAERS Safety Report 10017655 (Version 3)
Quarter: 2014Q2

REPORT INFORMATION
  Report Type: Spontaneous
  Country: US (occurrence: US)
  Receive Date: 20140318
  Receipt Date: 20140424
  Transmission Date: 20141212
  Serious: Yes (Other)
  Sender: FDA-Public Use
  Company Number: US-UCBSA-107176

PATIENT
  Age: 64 Year
  Sex: Female

DRUGS (4)
  1. KEPPRA [Suspect]
     Indication: GENERALISED TONIC-CLONIC SEIZURE
     Dosage: STRENGTH:1000 MG
     Route: 048
  2. ASA [Concomitant]
     Indication: CARDIAC DISORDER
     Route: 048
  3. CALCIUM CARBONATE [Concomitant]
     Indication: OSTEOPOROSIS
     Route: 048
  4. TOPAMAX [Concomitant]
     Indication: CONVULSION
     Route: 048
     Dates: start: 20120327

REACTIONS (2)
  - Thoracic vertebral fracture [Recovered/Resolved]
  - Fall [Unknown]
